FAERS Safety Report 4352368-2 (Version None)
Quarter: 2004Q2

REPORT INFORMATION
  Report Type: 
  Country: None (occurrence: None)
  Receive Date: 20040428
  Receipt Date: 20040416
  Transmission Date: 20050107
  Serious: Yes (Hospitalization)
  Sender: FDA-Public Use
  Company Number: FR-JNJFOC-20040404067

PATIENT
  Age: 38 Year
  Sex: Female

DRUGS (6)
  1. TRAMADOL HCL [Suspect]
     Indication: BACK PAIN
     Dosage: 150 MG, 1 IN 1 DAY, ORAL
     Route: 048
     Dates: start: 20031113, end: 20031118
  2. BIPROFENID (BISMUTH SUBCARBONATE) [Suspect]
     Dosage: 50 MG, 1 IN 1 DAY, ORAL
     Route: 048
     Dates: start: 20031113, end: 20031118
  3. VOLTAREN [Suspect]
     Dosage: TOPICAL
     Route: 061
     Dates: start: 20031117, end: 20031118
  4. TETRAZEPAM (TETRAZEPAM) [Suspect]
     Dosage: 50 MG, 1 IN 1 DAY, ORAL
     Route: 048
     Dates: start: 20031113, end: 20031118
  5. OMEPRAZOLE [Suspect]
     Dosage: 20 MG, 1 IN 1 DAY, ORAL
     Route: 048
     Dates: start: 20031113, end: 20031118
  6. MORPHINE [Concomitant]

REACTIONS (4)
  - DERMATITIS BULLOUS [None]
  - DRUG INTERACTION [None]
  - DRUG TOXICITY [None]
  - ERYTHEMA [None]
